FAERS Safety Report 25034933 (Version 1)
Quarter: 2025Q1

REPORT INFORMATION
  Report Type: Spontaneous
  Country: SA (occurrence: SA)
  Receive Date: 20250304
  Receipt Date: 20250304
  Transmission Date: 20250409
  Serious: Yes (Other)
  Sender: CHEPLAPHARM
  Company Number: SA-CHEPLA-2025002732

PATIENT
  Age: 70 Year
  Sex: Male

DRUGS (9)
  1. GANCICLOVIR [Suspect]
     Active Substance: GANCICLOVIR
     Indication: Cytomegalovirus chorioretinitis
     Route: 031
  2. VALGANCICLOVIR [Suspect]
     Active Substance: VALGANCICLOVIR
     Indication: Cytomegalovirus chorioretinitis
  3. FOSCAVIR [Suspect]
     Active Substance: FOSCARNET SODIUM
     Indication: Cytomegalovirus chorioretinitis
     Route: 031
  4. PREDNISOLONE ACETATE [Suspect]
     Active Substance: PREDNISOLONE ACETATE
     Indication: Cytomegalovirus chorioretinitis
     Route: 061
  5. ATROPINE [Suspect]
     Active Substance: ATROPINE
     Indication: Cytomegalovirus chorioretinitis
     Route: 061
  6. MYCOPHENOLATE MOFETIL [Concomitant]
     Active Substance: MYCOPHENOLATE MOFETIL
     Indication: Hepatocellular carcinoma
  7. MYCOPHENOLATE MOFETIL [Concomitant]
     Active Substance: MYCOPHENOLATE MOFETIL
     Indication: Immunosuppression
  8. TACROLIMUS [Concomitant]
     Active Substance: TACROLIMUS
     Indication: Immunosuppression
  9. TACROLIMUS [Concomitant]
     Active Substance: TACROLIMUS
     Indication: Hepatocellular carcinoma

REACTIONS (4)
  - Cytomegalovirus infection reactivation [Unknown]
  - Vitreous haemorrhage [Unknown]
  - Off label use [Unknown]
  - Off label use [Unknown]
